FAERS Safety Report 7408982-0 (Version None)
Quarter: 2011Q2

REPORT INFORMATION
  Report Type: 
  Country: None (occurrence: None)
  Receive Date: 20110412
  Receipt Date: 20110401
  Transmission Date: 20111010
  Serious: Yes (Other)
  Sender: FDA-Public Use
  Company Number: PHHY2009BR26285

PATIENT
  Sex: Female

DRUGS (3)
  1. EXELON [Suspect]
     Dosage: 9 MG/10CM2
     Route: 062
  2. EXELON [Suspect]
     Dosage: 18MG/10CM2
     Route: 062
  3. EXELON [Suspect]
     Dosage: 18MG/10CM2
     Route: 062

REACTIONS (4)
  - RASH [None]
  - AMNESIA [None]
  - WOUND [None]
  - SPINAL FRACTURE [None]
